FAERS Safety Report 14507449 (Version 1)
Quarter: 2018Q1

REPORT INFORMATION
  Report Type: Spontaneous
  Country: US (occurrence: US)
  Receive Date: 20180208
  Receipt Date: 20180208
  Transmission Date: 20180509
  Serious: Yes (Hospitalization, Other)
  Sender: FDA-Public Use
  Company Number: US-NAPPMUNDI-USA-2017-0141313

PATIENT
  Sex: Male
  Weight: 3.12 kg

DRUGS (1)
  1. BUPRENORPHINE (SIMILAR TO NDA 21-306) [Suspect]
     Active Substance: BUPRENORPHINE
     Indication: FOETAL EXPOSURE DURING PREGNANCY
     Dosage: UNK
     Route: 064

REACTIONS (5)
  - Drug withdrawal syndrome neonatal [Unknown]
  - Muscle rigidity [Unknown]
  - Hyperhidrosis [Unknown]
  - Foetal exposure during pregnancy [Unknown]
  - Muscle twitching [Unknown]
